FAERS Safety Report 23564228 (Version 1)
Quarter: 2024Q1

REPORT INFORMATION
  Report Type: Spontaneous
  Country: US (occurrence: US)
  Receive Date: 20240226
  Receipt Date: 20240226
  Transmission Date: 20240410
  Serious: No
  Sender: FDA-Public Use
  Company Number: US-AMNEAL PHARMACEUTICALS-2024-AMRX-00003

PATIENT
  Sex: Female
  Weight: 90.249 kg

DRUGS (1)
  1. EMVERM [Suspect]
     Active Substance: MEBENDAZOLE
     Indication: Product used for unknown indication
     Dosage: 100MG
     Route: 048
     Dates: start: 20231208

REACTIONS (2)
  - Drug ineffective [Unknown]
  - Unevaluable event [Unknown]
